FAERS Safety Report 4680181-5 (Version None)
Quarter: 2005Q2

REPORT INFORMATION
  Report Type: 
  Country: None (occurrence: None)
  Receive Date: 20050531
  Receipt Date: 20041123
  Transmission Date: 20051028
  Serious: Yes (Death, Hospitalization, Other)
  Sender: FDA-Public Use
  Company Number: FR-2004-033912

PATIENT

DRUGS (2)
  1. QUADRAMET [Suspect]
     Indication: PROSTATE CANCER METASTATIC
     Route: 042
  2. ZOLEDRONIC ACID (ZOLEDRONIC ACID) [Suspect]
     Indication: PROSTATE CANCER METASTATIC
     Dosage: 105 ML, INTRAVENOUS
     Route: 042
     Dates: start: 20041008, end: 20041008

REACTIONS (4)
  - CEREBRAL HAEMORRHAGE [None]
  - DISSEMINATED INTRAVASCULAR COAGULATION [None]
  - MALIGNANT NEOPLASM PROGRESSION [None]
  - RECTAL HAEMORRHAGE [None]
